FAERS Safety Report 18653967 (Version 3)
Quarter: 2021Q1

REPORT INFORMATION
  Report Type: Report from Study
  Country: None (occurrence: US)
  Receive Date: 20201223
  Receipt Date: 20210203
  Transmission Date: 20210419
  Serious: Yes (Other)
  Sender: FDA-Public Use
  Company Number: US-ABBVIE-20K-163-3649879-00

PATIENT
  Age: 59 Year
  Sex: Female
  Weight: 74.91 kg

DRUGS (11)
  1. NOCDURNA [Concomitant]
     Active Substance: DESMOPRESSIN ACETATE
     Indication: HYPERTENSION
  2. ERYTHROMYCIN. [Concomitant]
     Active Substance: ERYTHROMYCIN
     Indication: PROPHYLAXIS
  3. KETOROLAC [Concomitant]
     Active Substance: KETOROLAC TROMETHAMINE
     Indication: INFLAMMATION
  4. FOLIC ACID. [Concomitant]
     Active Substance: FOLIC ACID
     Indication: PRODUCT USED FOR UNKNOWN INDICATION
  5. METHOTREXATE. [Concomitant]
     Active Substance: METHOTREXATE
     Indication: PSORIATIC ARTHROPATHY
  6. HUMIRA [Suspect]
     Active Substance: ADALIMUMAB
     Indication: PSORIATIC ARTHROPATHY
     Dosage: CITRATE FREE
     Route: 058
     Dates: start: 202002, end: 20201006
  7. OMEPRAZOLE. [Concomitant]
     Active Substance: OMEPRAZOLE
     Indication: PREOPERATIVE CARE
  8. TEKTURNA HCT [Concomitant]
     Active Substance: ALISKIREN HEMIFUMARATE\HYDROCHLOROTHIAZIDE
     Indication: HYPERTENSION
  9. TRIAMCINOLONE [Concomitant]
     Active Substance: TRIAMCINOLONE
     Indication: PRODUCT USED FOR UNKNOWN INDICATION
  10. CORTISOL [Concomitant]
     Active Substance: HYDROCORTISONE
     Indication: GLUCOCORTICOID DEFICIENCY
  11. HUMIRA [Suspect]
     Active Substance: ADALIMUMAB
     Dosage: CITRATE FREE
     Route: 058
     Dates: start: 20201110

REACTIONS (7)
  - Parosmia [Recovered/Resolved]
  - COVID-19 [Recovered/Resolved]
  - Gallbladder hypofunction [Recovered/Resolved]
  - Psoriatic arthropathy [Recovering/Resolving]
  - Rash [Recovering/Resolving]
  - Sjogren^s syndrome [Recovering/Resolving]
  - Taste disorder [Recovered/Resolved]

NARRATIVE: CASE EVENT DATE: 202005
